FAERS Safety Report 25623532 (Version 2)
Quarter: 2025Q3

REPORT INFORMATION
  Report Type: Report from Study
  Country: ZA (occurrence: ZA)
  Receive Date: 20250730
  Receipt Date: 20250808
  Transmission Date: 20251021
  Serious: Yes (Life-Threatening)
  Sender: NOVARTIS
  Company Number: ZA-002147023-NVSC2025ZA110108

PATIENT
  Age: 56 Year
  Sex: Male

DRUGS (3)
  1. SIPONIMOD [Suspect]
     Active Substance: SIPONIMOD
     Indication: Multiple sclerosis
     Dosage: 2 MG, QD
     Route: 048
     Dates: start: 20221005
  2. SIPONIMOD [Suspect]
     Active Substance: SIPONIMOD
     Indication: Relapsing-remitting multiple sclerosis
  3. SIPONIMOD [Suspect]
     Active Substance: SIPONIMOD
     Indication: Secondary progressive multiple sclerosis

REACTIONS (3)
  - Lymphopenia [Recovered/Resolved]
  - Blood test abnormal [Recovered/Resolved]
  - Product dose omission issue [Unknown]
